FAERS Safety Report 10991325 (Version 3)
Quarter: 2015Q3

REPORT INFORMATION
  Report Type: Spontaneous
  Country: DE (occurrence: DE)
  Receive Date: 20150406
  Receipt Date: 20150729
  Transmission Date: 20151125
  Serious: Yes (Death)
  Sender: FDA-Public Use
  Company Number: DE-BAYER-2015-085007

PATIENT
  Age: 50 Year
  Sex: Male
  Weight: 69 kg

DRUGS (20)
  1. ATMADISC [Concomitant]
     Active Substance: FLUTICASONE PROPIONATE\SALMETEROL XINAFOATE
     Dosage: DAILY DOSE 2 DF
  2. ROCALTROL [Concomitant]
     Active Substance: CALCITRIOL
     Dosage: 0.25 ?G
     Route: 048
  3. PREDNISOLONE. [Concomitant]
     Active Substance: PREDNISOLONE
     Dosage: 7.5 MG, EVERY DAY
     Route: 048
  4. ANTRAMUPS [Concomitant]
     Active Substance: OMEPRAZOLE
     Dosage: 40 MG, EVERY DAY
     Route: 048
  5. ROCALTROL [Concomitant]
     Active Substance: CALCITRIOL
     Dosage: UNK
     Route: 048
  6. DEKRISTOL [Concomitant]
     Active Substance: CHOLECALCIFEROL
     Dosage: 20000 IU, EVENY 2 WEEKS
     Route: 048
  7. NEXAVAR [Suspect]
     Active Substance: SORAFENIB
     Indication: RENAL CELL CARCINOMA
     Dosage: 2 TABLETS IN THE MORNING, 2 TABLETS IN THE EVENING
     Route: 048
     Dates: start: 20150309
  8. FOLSAN [Concomitant]
     Active Substance: FOLIC ACID
     Dosage: DAILY DOSE 2.5 MG
     Route: 048
  9. ANTRAMUPS [Concomitant]
     Active Substance: OMEPRAZOLE
     Dosage: 20 MG, UNK
  10. ATMADISC [Concomitant]
     Active Substance: FLUTICASONE PROPIONATE\SALMETEROL XINAFOATE
     Dosage: 1 DF
  11. BEROTEC [Concomitant]
     Active Substance: FENOTEROL HYDROBROMIDE
     Dosage: 100 ?G, UNK
  12. TORASEMID [Concomitant]
     Active Substance: TORSEMIDE
     Dosage: 10 MG, EVERY DAY
     Route: 048
  13. METOHEXAL [Concomitant]
     Active Substance: METOPROLOL SUCCINATE
     Dosage: 190 MG, EVERY DAY
     Route: 048
  14. DIGITOXIN [Concomitant]
     Active Substance: DIGITOXIN
     Dosage: 0.07 MG, EVERY DAY
     Route: 048
  15. MARCUMAR [Concomitant]
     Active Substance: PHENPROCOUMON
     Route: 048
  16. AQUAPHOR [Concomitant]
     Active Substance: PETROLATUM
     Dosage: 10 MG, EVERY DAY
     Route: 048
  17. ROCALTROL [Concomitant]
     Active Substance: CALCITRIOL
     Dosage: 0.75 ?G, UNK
     Route: 048
  18. METOHEXAL [Concomitant]
     Active Substance: METOPROLOL SUCCINATE
     Dosage: 95 MG, UNK
     Route: 048
  19. FELODIPINE. [Concomitant]
     Active Substance: FELODIPINE
     Dosage: 10 MG, BID
     Route: 048
  20. ALLOPURINOL. [Concomitant]
     Active Substance: ALLOPURINOL
     Dosage: 100 MG, EVERY DAY
     Route: 048

REACTIONS (1)
  - Sudden cardiac death [Fatal]

NARRATIVE: CASE EVENT DATE: 20150309
